APPROVED DRUG PRODUCT: VERAPAMIL HYDROCHLORIDE
Active Ingredient: VERAPAMIL HYDROCHLORIDE
Strength: 10MG/4ML (2.5MG/ML)
Dosage Form/Route: SOLUTION;INTRAVENOUS
Application: A211015 | Product #002 | TE Code: AP
Applicant: SOMERSET THERAPEUTICS LLC
Approved: Jun 18, 2018 | RLD: No | RS: No | Type: RX